FAERS Safety Report 5657084-2 (Version None)
Quarter: 2008Q1

REPORT INFORMATION
  Report Type: 
  Country: None (occurrence: None)
  Receive Date: 20080310
  Receipt Date: 20080229
  Transmission Date: 20080703
  Serious: Yes (Other)
  Sender: FDA-Public Use
  Company Number: US-JNJFOC-20080300887

PATIENT
  Sex: Female
  Weight: 54.43 kg

DRUGS (5)
  1. FENTANYL TRANSDERMAL SYSTEM [Suspect]
     Dosage: 2 X 100 UG/HR PATCHES
     Route: 062
  2. FENTANYL TRANSDERMAL SYSTEM [Suspect]
     Indication: PAIN
     Route: 062
  3. PERCOCET [Concomitant]
     Indication: PAIN
     Route: 048
  4. LYRICA [Concomitant]
     Indication: DRUG USE FOR UNKNOWN INDICATION
     Route: 048
  5. CYMBALTA [Concomitant]
     Indication: DRUG USE FOR UNKNOWN INDICATION
     Route: 048

REACTIONS (9)
  - APPLICATION SITE ERYTHEMA [None]
  - APPLICATION SITE SWELLING [None]
  - DEVICE LEAKAGE [None]
  - DRUG ADMINISTERED AT INAPPROPRIATE SITE [None]
  - ENERGY INCREASED [None]
  - INCORRECT DRUG ADMINISTRATION DURATION [None]
  - MULTIPLE SCLEROSIS [None]
  - PAIN [None]
  - THERAPEUTIC RESPONSE DECREASED [None]
